FAERS Safety Report 8317151-1 (Version None)
Quarter: 2012Q2

REPORT INFORMATION
  Report Type: 
  Country: None (occurrence: None)
  Receive Date: 20120425
  Receipt Date: 20120416
  Transmission Date: 20120825
  Serious: Yes (Death, Hospitalization, Other)
  Sender: FDA-Public Use
  Company Number: AUR-APL-2011-05533

PATIENT
  Age: 60 Year
  Sex: Male

DRUGS (15)
  1. METFORMIN HCL [Suspect]
     Indication: TYPE 2 DIABETES MELLITUS
     Dosage: 1.5 GM
     Dates: end: 20110711
  2. LACTULOSE [Suspect]
     Indication: PRODUCT USED FOR UNKNOWN INDICATION
     Dates: start: 20110720, end: 20110725
  3. CILAXORAL (SODIUM PICOSULFATE) [Suspect]
     Indication: PRODUCT USED FOR UNKNOWN INDICATION
     Dates: start: 20110712, end: 20110725
  4. SPIRONOLACTONE [Concomitant]
  5. BLINDED THERAPY [Suspect]
     Indication: TYPE 2 DIABETES MELLITUS
     Dates: start: 20110414
  6. ISOPHANE INSULIN [Suspect]
     Indication: DIABETES MELLITUS
     Dosage: 8 IU
     Dates: start: 20110718
  7. NOVOLOG [Suspect]
     Indication: DIABETES MELLITUS
     Dosage: 8 IU
     Dates: start: 20110711, end: 20110719
  8. IMPORTAL (LACTITOL) [Concomitant]
  9. DALTEPARIN SODIUM [Suspect]
     Indication: PRODUCT USED FOR UNKNOWN INDICATION
     Dosage: 1500 IU, 1 D
     Dates: start: 20110711
  10. ACETYLSALICYLIC ACID SRT [Suspect]
     Indication: PRODUCT USED FOR UNKNOWN INDICATION
     Dosage: 75 MG
     Dates: end: 20110722
  11. OMEPRAZOLE [Concomitant]
  12. OXYCONTIN [Concomitant]
  13. ASPIRIN [Concomitant]
  14. CLOPIDOGREL [Suspect]
     Indication: PRODUCT USED FOR UNKNOWN INDICATION
     Dosage: 75 MG
  15. FUROSEMIDE [Concomitant]

REACTIONS (19)
  - PORTAL HYPERTENSION [None]
  - ARRHYTHMIA [None]
  - DYSPNOEA [None]
  - CONSTIPATION [None]
  - ASCITES [None]
  - PORTAL VEIN THROMBOSIS [None]
  - HEPATIC CIRRHOSIS [None]
  - NAUSEA [None]
  - SUDDEN CARDIAC DEATH [None]
  - PULMONARY EMBOLISM [None]
  - CHEST PAIN [None]
  - PANCREATITIS [None]
  - COUGH [None]
  - RIGHT VENTRICULAR FAILURE [None]
  - GASTRIC VARICES [None]
  - HAEMATURIA [None]
  - INGUINAL HERNIA [None]
  - PANCREATITIS ACUTE [None]
  - DEHYDRATION [None]
